FAERS Safety Report 8936645 (Version 2)
Quarter: 2012Q4

REPORT INFORMATION
  Report Type: 
  Country: TN (occurrence: TN)
  Receive Date: 20121130
  Receipt Date: 20121212
  Transmission Date: 20130627
  Serious: Yes (Other)
  Sender: FDA-Public Use
  Company Number: TN-PFIZER INC-2012297527

PATIENT
  Age: 45 Day
  Sex: Male

DRUGS (1)
  1. XYLOCAINE [Suspect]
     Indication: LOCAL ANESTHETIC
     Dosage: 3 mg/kg

REACTIONS (2)
  - Neurotoxicity [Recovered/Resolved]
  - Convulsion [Recovered/Resolved]
